FAERS Safety Report 6162985-5 (Version None)
Quarter: 2009Q2

REPORT INFORMATION
  Report Type: 
  Country: None (occurrence: None)
  Receive Date: 20090420
  Receipt Date: 20090406
  Transmission Date: 20091009
  Serious: Yes (Other)
  Sender: FDA-Public Use
  Company Number: 230876K08USA

PATIENT
  Age: 51 Year
  Sex: Female

DRUGS (5)
  1. REBIF [Suspect]
     Indication: MULTIPLE SCLEROSIS
     Dosage: 44 MCG; 22 MCG;  3 IN 1 WEEKS, SUBCUTANEOUS,  44 MCG
     Route: 057
     Dates: start: 20070925, end: 20080801
  2. REBIF [Suspect]
     Indication: MULTIPLE SCLEROSIS
     Dosage: 44 MCG; 22 MCG;  3 IN 1 WEEKS, SUBCUTANEOUS,  44 MCG
     Route: 057
     Dates: start: 20080801, end: 20081101
  3. REBIF [Suspect]
     Indication: MULTIPLE SCLEROSIS
     Dosage: 44 MCG; 22 MCG;  3 IN 1 WEEKS, SUBCUTANEOUS,  44 MCG
     Route: 057
     Dates: start: 20081101
  4. ASPIRIN [Concomitant]
  5. ZYRTEC [Concomitant]

REACTIONS (6)
  - DIZZINESS [None]
  - HYPERTENSION [None]
  - NERVOUS SYSTEM DISORDER [None]
  - PROTEIN URINE PRESENT [None]
  - VERTIGO [None]
  - WEIGHT DECREASED [None]
